FAERS Safety Report 9314796 (Version 1)
Quarter: 2013Q2

REPORT INFORMATION
  Report Type: Spontaneous
  Country: CN (occurrence: CN)
  Receive Date: 20130529
  Receipt Date: 20130529
  Transmission Date: 20140414
  Serious: Yes (Other)
  Sender: FDA-Public Use
  Company Number: CN-ASTRAZENECA-2013SE37079

PATIENT
  Age: 31837 Day
  Sex: Male
  Weight: 56.5 kg

DRUGS (3)
  1. GOSERELIN [Suspect]
     Indication: PROSTATE CANCER
     Route: 058
     Dates: start: 20111107, end: 20111107
  2. GOSERELIN [Suspect]
     Indication: PROSTATE CANCER
     Route: 058
     Dates: start: 20111205, end: 20111205
  3. FLUTAMIDE [Suspect]
     Indication: PROSTATE CANCER
     Route: 048
     Dates: start: 20111107, end: 20120101

REACTIONS (1)
  - Hepatocellular injury [Recovering/Resolving]
